FAERS Safety Report 20237079 (Version 1)
Quarter: 2021Q4

REPORT INFORMATION
  Report Type: Spontaneous
  Country: FR (occurrence: FR)
  Receive Date: 20211228
  Receipt Date: 20211228
  Transmission Date: 20220303
  Serious: Yes (Hospitalization)
  Sender: FDA-Public Use
  Company Number: None

PATIENT
  Age: 51 Year
  Sex: Male
  Weight: 82 kg

DRUGS (1)
  1. KEYTRUDA [Suspect]
     Active Substance: PEMBROLIZUMAB
     Indication: Desmoplastic melanoma
     Dosage: 200 MG EVERY 3 WEEKS
     Route: 041
     Dates: start: 20210203, end: 20211013

REACTIONS (3)
  - Diabetes insipidus [Recovering/Resolving]
  - Sjogren^s syndrome [Recovering/Resolving]
  - Type 1 diabetes mellitus [Recovering/Resolving]

NARRATIVE: CASE EVENT DATE: 20210630
